FAERS Safety Report 4707267-0 (Version None)
Quarter: 2005Q3

REPORT INFORMATION
  Report Type: 
  Country: None (occurrence: None)
  Receive Date: 20050706
  Receipt Date: 20050630
  Transmission Date: 20060218
  Serious: Yes (Other)
  Sender: FDA-Public Use
  Company Number: PHBS2005NL09465

PATIENT
  Age: 57 Year

DRUGS (2)
  1. TRILEPTAL [Suspect]
     Indication: EPILEPSY
     Dosage: 750 MG/DAY
     Route: 048
  2. DEPAKENE [Concomitant]
     Indication: EPILEPSY
     Dosage: 1000 MG, BID

REACTIONS (3)
  - INFLAMMATION [None]
  - PLEURAL DISORDER [None]
  - PLEURAL EFFUSION [None]
